FAERS Safety Report 7479777-7 (Version None)
Quarter: 2011Q2

REPORT INFORMATION
  Report Type: 
  Country: None (occurrence: None)
  Receive Date: 20110513
  Receipt Date: 20110511
  Transmission Date: 20111010
  Serious: Yes (Other)
  Sender: FDA-Public Use
  Company Number: DE-MERCK-1105DEU00047

PATIENT
  Age: 74 Year
  Sex: Male
  Weight: 80 kg

DRUGS (8)
  1. ZOCOR [Suspect]
     Indication: ACUTE MYOCARDIAL INFARCTION
     Route: 048
     Dates: start: 20101203, end: 20101211
  2. BISOPROLOL [Concomitant]
     Route: 065
  3. ZOCOR [Suspect]
     Indication: MYOCARDIAL INFARCTION
     Route: 048
     Dates: start: 20101203, end: 20101211
  4. RIVAROXABAN [Concomitant]
     Route: 065
  5. ASPIRIN [Concomitant]
     Route: 048
  6. PRASUGREL HYDROCHLORIDE [Concomitant]
     Route: 065
  7. TORSEMIDE [Concomitant]
     Route: 065
  8. PANTOPRAZOLE SODIUM [Concomitant]
     Route: 065

REACTIONS (3)
  - RHABDOMYOLYSIS [None]
  - PAIN IN EXTREMITY [None]
  - BLOOD CREATINE PHOSPHOKINASE INCREASED [None]
